FAERS Safety Report 12175100 (Version 1)
Quarter: 2016Q1

REPORT INFORMATION
  Report Type: Spontaneous
  Country: PL (occurrence: PL)
  Receive Date: 20160314
  Receipt Date: 20160314
  Transmission Date: 20160526
  Serious: Yes (Hospitalization)
  Sender: FDA-Public Use
  Company Number: PL-APOTEX-2016AP007114

PATIENT

DRUGS (8)
  1. LAMOTRIX [Concomitant]
     Active Substance: LAMOTRIGINE
     Indication: OBSESSIVE-COMPULSIVE DISORDER
     Dosage: UNK
     Dates: start: 201510, end: 20160102
  2. TEGRETOL [Concomitant]
     Active Substance: CARBAMAZEPINE
     Indication: OBSESSIVE-COMPULSIVE DISORDER
     Dosage: UNK
  3. TEGRETOL [Concomitant]
     Active Substance: CARBAMAZEPINE
     Indication: FEAR
  4. MIRZATEN [Suspect]
     Active Substance: MIRTAZAPINE
     Indication: OBSESSIVE-COMPULSIVE DISORDER
     Dosage: 45 MG, UNK
     Route: 048
     Dates: start: 2015
  5. MIRZATEN [Suspect]
     Active Substance: MIRTAZAPINE
     Indication: FEAR
  6. LAMOTRIX [Concomitant]
     Active Substance: LAMOTRIGINE
     Indication: FEAR
  7. PAXIL [Suspect]
     Active Substance: PAROXETINE HYDROCHLORIDE
     Indication: OBSESSIVE-COMPULSIVE DISORDER
     Dosage: 60 MG, UNK
     Route: 048
     Dates: start: 2015
  8. LYRICA [Concomitant]
     Active Substance: PREGABALIN
     Indication: FEAR
     Dosage: UNK
     Route: 048
     Dates: start: 20151016, end: 20151215

REACTIONS (2)
  - Fear [Unknown]
  - Musculoskeletal stiffness [Unknown]

NARRATIVE: CASE EVENT DATE: 201502
